FAERS Safety Report 20376550 (Version 1)
Quarter: 2022Q1

REPORT INFORMATION
  Report Type: Report from Study
  Country: US (occurrence: US)
  Receive Date: 20220125
  Receipt Date: 20220125
  Transmission Date: 20220423
  Serious: Yes (Other)
  Sender: FDA-Public Use
  Company Number: US-GILEAD-2022-0566548

PATIENT
  Sex: Female

DRUGS (1)
  1. IDELALISIB [Suspect]
     Active Substance: IDELALISIB
     Indication: Lymphoma
     Dosage: 100 MG, QD
     Route: 048
     Dates: start: 20211014

REACTIONS (4)
  - Lymphoma [Not Recovered/Not Resolved]
  - Constipation [Recovered/Resolved]
  - Platelet count abnormal [Recovered/Resolved]
  - Immune system disorder [Unknown]
